FAERS Safety Report 6437155-3 (Version None)
Quarter: 2009Q4

REPORT INFORMATION
  Report Type: 
  Country: None (occurrence: None)
  Receive Date: 20091112
  Receipt Date: 20091101
  Transmission Date: 20100525
  Serious: Yes (Hospitalization, Other)
  Sender: FDA-Public Use
  Company Number: CA-ELI_LILLY_AND_COMPANY-CA200911000222

PATIENT
  Age: 85 Year
  Sex: Female

DRUGS (15)
  1. FORTEO [Suspect]
     Indication: OSTEOPOROSIS
     Dosage: 20 UG, DAILY (1/D)
     Dates: start: 20080929, end: 20091001
  2. FORTEO [Suspect]
     Dosage: 20 UG, DAILY (1/D)
     Dates: start: 20091001
  3. NORVASC [Concomitant]
  4. VASOTEC [Concomitant]
  5. LIPITOR [Concomitant]
  6. PREDNISONE [Concomitant]
  7. PLAVIX [Concomitant]
  8. NITRO                              /00003201/ [Concomitant]
  9. DETROL [Concomitant]
  10. PANTOPRAZOLE [Concomitant]
  11. BISOPROLOL SANDOZ [Concomitant]
  12. VITALUX [Concomitant]
  13. CALCIUM [Concomitant]
  14. VITAMIN D [Concomitant]
  15. METFORMIN HCL [Concomitant]

REACTIONS (4)
  - BLOOD GLUCOSE DECREASED [None]
  - DEPRESSED LEVEL OF CONSCIOUSNESS [None]
  - DIARRHOEA [None]
  - MALAISE [None]
